FAERS Safety Report 6670226-5 (Version None)
Quarter: 2010Q2

REPORT INFORMATION
  Report Type: 
  Country: None (occurrence: None)
  Receive Date: 20100406
  Receipt Date: 20100312
  Transmission Date: 20101027
  Serious: No
  Sender: FDA-Public Use
  Company Number: US-ALLERGAN-1003385US

PATIENT
  Age: 65 Year
  Sex: Female

DRUGS (6)
  1. LATISSE [Suspect]
     Indication: GROWTH OF EYELASHES
     Dosage: UNK
     Dates: start: 20100201, end: 20100311
  2. LATISSE [Suspect]
     Dosage: UNK
     Dates: start: 20100201, end: 20100311
  3. PRENATAL VITAMINS                  /01549301/ [Concomitant]
  4. VITAMIN C                          /00008001/ [Concomitant]
  5. VITAMIN A [Concomitant]
  6. PREMARIN [Concomitant]

REACTIONS (3)
  - DRUG INEFFECTIVE [None]
  - HAIR GROWTH ABNORMAL [None]
  - HAIR TEXTURE ABNORMAL [None]
